FAERS Safety Report 15640383 (Version 1)
Quarter: 2018Q4

REPORT INFORMATION
  Report Type: Spontaneous
  Country: FR (occurrence: FR)
  Receive Date: 20181120
  Receipt Date: 20181120
  Transmission Date: 20190205
  Serious: Yes (Hospitalization)
  Sender: FDA-Public Use
  Company Number: PHHY2018FR158988

PATIENT
  Age: 83 Year
  Sex: Male
  Weight: 68 kg

DRUGS (2)
  1. REVOLADE [Suspect]
     Active Substance: ELTROMBOPAG
     Indication: IMMUNE THROMBOCYTOPENIC PURPURA
     Dosage: 50 MG, QD
     Route: 048
     Dates: start: 201807, end: 20180914
  2. PREVISCAN (FLUINDIONE) [Suspect]
     Active Substance: FLUINDIONE
     Indication: PHLEBITIS
     Dosage: 20 MG, QD
     Route: 048
     Dates: start: 201501, end: 20181010

REACTIONS (3)
  - Ischaemic stroke [Recovered/Resolved with Sequelae]
  - Drug ineffective [Recovered/Resolved]
  - Cerebellar stroke [Recovered/Resolved with Sequelae]

NARRATIVE: CASE EVENT DATE: 20181008
